FAERS Safety Report 11433598 (Version 1)
Quarter: 2015Q3

REPORT INFORMATION
  Report Type: Spontaneous
  Country: CA (occurrence: CA)
  Receive Date: 20150831
  Receipt Date: 20150831
  Transmission Date: 20151125
  Serious: Yes (Hospitalization)
  Sender: FDA-Public Use
  Company Number: CA-MACLEODS PHARMACEUTICALS US LTD-MAC2015001949

PATIENT

DRUGS (3)
  1. OLANZAPINE 2.5MG TABLET [Suspect]
     Active Substance: OLANZAPINE
     Indication: UNDERWEIGHT
     Dosage: 2.5 MG, QD
     Route: 065
  2. OLANZAPINE 2.5MG TABLET [Suspect]
     Active Substance: OLANZAPINE
     Indication: COGNITIVE DISORDER
     Dosage: 7.5 MG, QD
     Route: 065
  3. OLANZAPINE 2.5MG TABLET [Suspect]
     Active Substance: OLANZAPINE
     Indication: EXCESSIVE EXERCISE

REACTIONS (2)
  - Off label use [Recovering/Resolving]
  - Atrioventricular block first degree [Recovering/Resolving]
